FAERS Safety Report 23827707 (Version 2)
Quarter: 2024Q2

REPORT INFORMATION
  Report Type: Spontaneous
  Country: US (occurrence: US)
  Receive Date: 20240507
  Receipt Date: 20240605
  Transmission Date: 20240716
  Serious: No
  Sender: FDA-Public Use
  Company Number: US-BRISTOL-MYERS SQUIBB COMPANY-2024-070908

PATIENT
  Age: 83 Year
  Sex: Female

DRUGS (4)
  1. CAMZYOS [Suspect]
     Active Substance: MAVACAMTEN
     Indication: Hypertrophic cardiomyopathy
     Dosage: STRENGTH: 5MG AND 2.5MG
     Route: 048
     Dates: start: 202402
  2. CAMZYOS [Suspect]
     Active Substance: MAVACAMTEN
     Route: 048
     Dates: end: 20240530
  3. DULOXETINE [Suspect]
     Active Substance: DULOXETINE
     Indication: Anxiety
  4. DULOXETINE [Suspect]
     Active Substance: DULOXETINE
     Indication: Back pain

REACTIONS (1)
  - Tremor [Unknown]

NARRATIVE: CASE EVENT DATE: 20240228
